FAERS Safety Report 5854685-3 (Version None)
Quarter: 2008Q3

REPORT INFORMATION
  Report Type: 
  Country: None (occurrence: None)
  Receive Date: 20080822
  Receipt Date: 20071031
  Transmission Date: 20090109
  Serious: No
  Sender: FDA-Public Use
  Company Number: US-ABBOTT-07P-163-0358500-00

PATIENT
  Sex: Female
  Weight: 47.67 kg

DRUGS (4)
  1. SYNTHROID [Suspect]
     Indication: HYPOTHYROIDISM
     Route: 048
     Dates: start: 20050101
  2. SYNTHROID [Suspect]
     Route: 048
     Dates: start: 20050101
  3. DIAZEPAM [Concomitant]
     Indication: ANXIETY
     Route: 048
     Dates: start: 19870101
  4. METHYLPHENIDATE HCL [Concomitant]
     Indication: CENTRAL NERVOUS SYSTEM STIMULATION
     Route: 048
     Dates: start: 19870101

REACTIONS (3)
  - ASTHENIA [None]
  - LIP SWELLING [None]
  - OEDEMA MOUTH [None]
